FAERS Safety Report 5463098-8 (Version None)
Quarter: 2007Q3

REPORT INFORMATION
  Report Type: 
  Country: None (occurrence: None)
  Receive Date: 20070918
  Receipt Date: 20070918
  Transmission Date: 20080115
  Serious: Yes (Life-Threatening, Disabling)
  Sender: FDA-Public Use
  Company Number: None

PATIENT
  Age: 20 Year
  Sex: Male
  Weight: 72.5755 kg

DRUGS (1)
  1. FLUOXETINE [Suspect]
     Indication: BIPOLAR I DISORDER
     Dosage: 60MGS 1 PO
     Route: 048

REACTIONS (1)
  - SUICIDAL IDEATION [None]
